FAERS Safety Report 23817657 (Version 1)
Quarter: 2024Q2

REPORT INFORMATION
  Report Type: Spontaneous
  Country: US (occurrence: US)
  Receive Date: 20240506
  Receipt Date: 20240506
  Transmission Date: 20240716
  Serious: Yes (Hospitalization, Other)
  Sender: FDA-Public Use
  Company Number: US-WOCKHARDT LIMITED-2024WLD000018

PATIENT
  Age: 7 Year
  Sex: Female

DRUGS (1)
  1. BUPROPION [Suspect]
     Active Substance: BUPROPION
     Indication: Product used for unknown indication
     Dosage: UNK
     Route: 048

REACTIONS (5)
  - Pulmonary oedema [Recovered/Resolved]
  - Serotonin syndrome [Recovered/Resolved]
  - Accidental overdose [Unknown]
  - Electrocardiogram QT prolonged [Recovered/Resolved]
  - Generalised tonic-clonic seizure [Recovered/Resolved]
